FAERS Safety Report 16767333 (Version 2)
Quarter: 2019Q3

REPORT INFORMATION
  Report Type: Spontaneous
  Country: GB (occurrence: GB)
  Receive Date: 20190903
  Receipt Date: 20190917
  Transmission Date: 20191005
  Serious: Yes (Other)
  Sender: FDA-Public Use
  Company Number: GB-MYLANLABS-2019M1081492

PATIENT
  Sex: Female
  Weight: 40 kg

DRUGS (6)
  1. LANSOPRAZOLE. [Suspect]
     Active Substance: LANSOPRAZOLE
     Indication: PRODUCT USED FOR UNKNOWN INDICATION
     Dosage: 30 MG, QD
     Route: 065
  2. OMEPRAZOLE. [Concomitant]
     Active Substance: OMEPRAZOLE
     Indication: CARDIAC DISORDER
     Dosage: UNK
  3. PLAVIX [Concomitant]
     Active Substance: CLOPIDOGREL BISULFATE
     Indication: CARDIAC DISORDER
     Dosage: UNK UNK, UNK
     Route: 065
  4. ASPIRIN                            /00002701/ [Concomitant]
     Active Substance: ASPIRIN
     Indication: CARDIAC DISORDER
     Dosage: UNK UNK, UNK
     Route: 065
  5. BISOPROLOL [Suspect]
     Active Substance: BISOPROLOL
     Indication: PRODUCT USED FOR UNKNOWN INDICATION
     Dosage: UNK
  6. ATORVASTATIN [Concomitant]
     Active Substance: ATORVASTATIN
     Indication: CARDIAC DISORDER
     Dosage: UNK

REACTIONS (16)
  - General physical health deterioration [Not Recovered/Not Resolved]
  - Hypokinesia [Unknown]
  - Myalgia [Unknown]
  - Internal haemorrhage [Unknown]
  - Vitamin B complex deficiency [Unknown]
  - Gait disturbance [Unknown]
  - Anaemia [Unknown]
  - Lower respiratory tract infection [Unknown]
  - Haemoglobin decreased [Unknown]
  - Head discomfort [Unknown]
  - Heart rate increased [Unknown]
  - Insomnia [Unknown]
  - Dizziness [Unknown]
  - Dyspnoea [Unknown]
  - Muscle contractions involuntary [Unknown]
  - Red blood cell count decreased [Unknown]

NARRATIVE: CASE EVENT DATE: 20181010
